FAERS Safety Report 7051286-9 (Version None)
Quarter: 2010Q4

REPORT INFORMATION
  Report Type: 
  Country: None (occurrence: None)
  Receive Date: 20101019
  Receipt Date: 20101007
  Transmission Date: 20110411
  Serious: Yes (Hospitalization)
  Sender: FDA-Public Use
  Company Number: CA-ELI_LILLY_AND_COMPANY-CA201010002508

PATIENT
  Age: 57 Year
  Sex: Female

DRUGS (7)
  1. FORTEO [Suspect]
     Indication: OSTEOPOROSIS
     Dosage: 20 UG, DAILY (1/D)
     Route: 058
     Dates: start: 20090814
  2. HYDROCHLOROTHIAZIDE [Concomitant]
  3. RAMIPRIL [Concomitant]
  4. ASACOL [Concomitant]
  5. VITAMIN D [Concomitant]
  6. CALCIUM [Concomitant]
  7. MULTI-VITAMINS [Concomitant]

REACTIONS (2)
  - HYPERCALCAEMIA [None]
  - LIMB OPERATION [None]
